FAERS Safety Report 14926832 (Version 1)
Quarter: 2018Q2

REPORT INFORMATION
  Report Type: Spontaneous
  Country: US (occurrence: US)
  Receive Date: 20180523
  Receipt Date: 20180523
  Transmission Date: 20180711
  Serious: No
  Sender: FDA-Public Use
  Company Number: US-ASTRAZENECA-2018SE59523

PATIENT

DRUGS (1)
  1. PRILOSEC [Suspect]
     Active Substance: OMEPRAZOLE MAGNESIUM
     Indication: DYSPEPSIA
     Dosage: TAKING PRODUCT FOR A LONG TIME
     Route: 048

REACTIONS (5)
  - Muscle spasms [Not Recovered/Not Resolved]
  - Rebound effect [Unknown]
  - Myalgia [Not Recovered/Not Resolved]
  - Intentional product misuse [Unknown]
  - Incorrect drug administration duration [Unknown]
